FAERS Safety Report 7392683-1 (Version None)
Quarter: 2011Q2

REPORT INFORMATION
  Report Type: 
  Country: None (occurrence: None)
  Receive Date: 20110404
  Receipt Date: 20110325
  Transmission Date: 20111010
  Serious: Yes (Other)
  Sender: FDA-Public Use
  Company Number: BE-ASTRAZENECA-2011SE17825

PATIENT
  Sex: Female

DRUGS (6)
  1. LISINOPRIL [Concomitant]
  2. ARIMIDEX [Suspect]
     Indication: BREAST CANCER
     Route: 048
     Dates: start: 20091105, end: 20100611
  3. GLUCOPHAGE [Concomitant]
     Indication: DEPRESSION
  4. DOLZAN [Concomitant]
  5. ASPIRIN [Concomitant]
  6. PROLOPA HBS [Concomitant]

REACTIONS (5)
  - ARTHROPATHY [None]
  - PAIN [None]
  - AMNESIA [None]
  - MUSCULAR WEAKNESS [None]
  - HOT FLUSH [None]
